FAERS Safety Report 5473327-2 (Version None)
Quarter: 2007Q4

REPORT INFORMATION
  Report Type: 
  Country: None (occurrence: None)
  Receive Date: 20071001
  Receipt Date: 20070921
  Transmission Date: 20080405
  Serious: Yes (Other)
  Sender: FDA-Public Use
  Company Number: JP-JNJFOC-20070805677

PATIENT
  Age: 83 Year
  Sex: Female

DRUGS (3)
  1. DUROTEP [Suspect]
     Indication: CANCER PAIN
     Route: 062
  2. FRUSEMIDE [Suspect]
     Indication: OEDEMA
     Route: 065
  3. TAZOBACTAM [Concomitant]
     Indication: URINARY TRACT INFECTION
     Route: 065

REACTIONS (4)
  - BLOOD PRESSURE DECREASED [None]
  - CYANOSIS [None]
  - OEDEMA [None]
  - SHOCK [None]
